FAERS Safety Report 17487061 (Version 3)
Quarter: 2020Q3

REPORT INFORMATION
  Report Type: Other
  Country: DE (occurrence: DE)
  Receive Date: 20200303
  Receipt Date: 20200928
  Transmission Date: 20201102
  Serious: Yes (Other)
  Sender: FDA-Public Use
  Company Number: DE-ROCHE-2555050

PATIENT
  Age: 30 Year
  Sex: Male
  Weight: 95 kg

DRUGS (8)
  1. MOLSIDOMIN [Concomitant]
     Active Substance: MOLSIDOMINE
     Indication: ANGINA PECTORIS
     Dosage: DEFINITION OF THE INTERVAL: AS REQUIRED
     Route: 048
  2. OCRELIZUMAB. [Suspect]
     Active Substance: OCRELIZUMAB
     Indication: PRIMARY PROGRESSIVE MULTIPLE SCLEROSIS
     Dosage: MOST RECENT DOSE OF OCRELIZUMAB WAS RECEIVED ON 02/MAY/2019.
     Route: 042
     Dates: start: 20190418
  3. AMLODIPIN [Concomitant]
     Active Substance: AMLODIPINE BESYLATE
     Indication: HYPERTENSION
     Route: 048
  4. CANDESARTAN. [Concomitant]
     Active Substance: CANDESARTAN
     Indication: HYPERTENSION
     Route: 048
  5. DOCITON [Concomitant]
     Active Substance: PROPRANOLOL HYDROCHLORIDE
     Indication: HYPERTENSION
     Route: 048
     Dates: start: 2012
  6. RESTEX [Concomitant]
     Active Substance: BENSERAZIDE\LEVODOPA
     Indication: RESTLESS LEGS SYNDROME
     Route: 048
     Dates: start: 20160422
  7. INSULIN [Concomitant]
     Active Substance: INSULIN NOS
     Indication: DIABETES MELLITUS
     Dosage: DEFINITION OF THE INTERVAL: AS REQUIRED
     Route: 058
  8. LYRICA [Concomitant]
     Active Substance: PREGABALIN
     Route: 048
     Dates: start: 20161111

REACTIONS (1)
  - Pneumonia [Recovered/Resolved]

NARRATIVE: CASE EVENT DATE: 20191028
